FAERS Safety Report 24643072 (Version 1)
Quarter: 2024Q4

REPORT INFORMATION
  Report Type: Spontaneous
  Country: US (occurrence: None)
  Receive Date: 20241119
  Receipt Date: 20241119
  Transmission Date: 20250115
  Serious: Yes (Other)
  Sender: Public
  Company Number: None

PATIENT
  Age: 86 Year
  Sex: Male

DRUGS (8)
  1. ERLEADA [Suspect]
     Active Substance: APALUTAMIDE
     Indication: Prostate cancer
     Dosage: FREQUENCY : DAILY;?
     Route: 048
     Dates: start: 20240520, end: 20241112
  2. FINASTERIDE [Concomitant]
     Active Substance: FINASTERIDE
  3. TAMSULOSIN [Concomitant]
     Active Substance: TAMSULOSIN
  4. XARELTO [Concomitant]
     Active Substance: RIVAROXABAN
  5. olmersartan [Concomitant]
  6. AMLODIPINE [Concomitant]
     Active Substance: AMLODIPINE BESYLATE
  7. MYRBETRIQ [Concomitant]
     Active Substance: MIRABEGRON
  8. LUPRON DEPOT [Concomitant]
     Active Substance: LEUPROLIDE ACETATE

REACTIONS (1)
  - Rash [None]

NARRATIVE: CASE EVENT DATE: 20241019
